FAERS Safety Report 4971653-4 (Version None)
Quarter: 2006Q2

REPORT INFORMATION
  Report Type: 
  Country: None (occurrence: None)
  Receive Date: 20060413
  Receipt Date: 20050706
  Transmission Date: 20061013
  Serious: Yes (Death, Hospitalization)
  Sender: FDA-Public Use
  Company Number: FR-ABBOTT-05P-056-0304887-01

PATIENT
  Sex: Male
  Weight: 44 kg

DRUGS (49)
  1. RITONAVIR SOFT GELATIN CAPSULES [Suspect]
     Indication: HIV INFECTION
     Route: 048
     Dates: start: 20050322, end: 20050427
  2. RITONAVIR SOFT GELATIN CAPSULES [Suspect]
     Route: 048
     Dates: start: 20050512, end: 20050525
  3. RITONAVIR SOFT GELATIN CAPSULES [Suspect]
     Route: 048
     Dates: start: 20050616, end: 20050617
  4. VIREAD [Concomitant]
     Indication: HIV INFECTION
     Route: 048
     Dates: start: 20041221
  5. VIREAD [Concomitant]
     Dates: start: 20050512
  6. VIREAD [Concomitant]
     Dates: start: 20050616
  7. LAMIVUDINE [Concomitant]
     Indication: HIV INFECTION
     Route: 048
     Dates: start: 20050322
  8. LAMIVUDINE [Concomitant]
     Route: 048
     Dates: start: 20050512
  9. LAMIVUDINE [Concomitant]
     Route: 048
     Dates: start: 20050616
  10. LOPERAMIDE HYDROCHLORIDE [Concomitant]
     Indication: DIARRHOEA
     Route: 048
     Dates: end: 20050623
  11. LEVOTHYROXINE SODIUM [Concomitant]
     Indication: HYPOTHYROIDISM
     Route: 048
  12. LEVOTHYROXINE SODIUM [Concomitant]
     Route: 048
     Dates: start: 20050407
  13. FLUCONAZOLE [Concomitant]
     Indication: CANDIDIASIS
     Route: 042
  14. FLUCONAZOLE [Concomitant]
     Route: 042
     Dates: start: 20050403
  15. PAROXETINE HYDROCHLORIDE [Concomitant]
     Indication: DEPRESSION
     Route: 048
     Dates: start: 20050429
  16. PAROXETINE HYDROCHLORIDE [Concomitant]
     Route: 048
     Dates: start: 20050505, end: 20050623
  17. OXYCODONE HCL [Concomitant]
     Indication: DIARRHOEA
     Route: 048
  18. OXYCODONE HCL [Concomitant]
     Route: 048
     Dates: start: 20050403
  19. OXYCODONE HCL [Concomitant]
     Route: 048
     Dates: start: 20050502, end: 20050623
  20. ONDANSETRON HYDROCHLORIDE [Concomitant]
     Indication: VOMITING
     Route: 042
     Dates: start: 20050515, end: 20050623
  21. VANCOMYCIN [Concomitant]
     Indication: LUNG DISORDER
     Route: 042
     Dates: start: 20050430
  22. VANCOMYCIN [Concomitant]
     Route: 042
     Dates: start: 20050518, end: 20050623
  23. PIP/TAZO [Concomitant]
     Indication: LUNG DISORDER
     Route: 042
     Dates: start: 20050518, end: 20050623
  24. ALINIA [Concomitant]
     Indication: GASTROENTERITIS CRYPTOSPORIDIAL
     Route: 048
     Dates: start: 20050519, end: 20050623
  25. BACTRIM [Concomitant]
     Indication: INFECTION PROPHYLAXIS
     Route: 042
     Dates: start: 20050427, end: 20050623
  26. VALACYCLOVIR HCL [Concomitant]
     Indication: ANTIVIRAL PROPHYLAXIS
     Route: 042
     Dates: start: 20050428, end: 20050623
  27. METOPIMAZINE [Concomitant]
     Indication: PROPHYLAXIS OF NAUSEA AND VOMITING
     Route: 042
     Dates: start: 20050505, end: 20050623
  28. TMC114 [Concomitant]
     Indication: HIV INFECTION
     Route: 048
     Dates: start: 20050322, end: 20050427
  29. TMC114 [Concomitant]
     Route: 048
     Dates: start: 20050512, end: 20050525
  30. TMC114 [Concomitant]
     Route: 048
     Dates: start: 20050616, end: 20050617
  31. PAROMOMYCIN SULFATE [Concomitant]
     Indication: DIARRHOEA
     Route: 048
  32. PAROMOMYCIN SULFATE [Concomitant]
     Route: 048
     Dates: start: 20050505, end: 20050623
  33. PARENTERAL [Concomitant]
     Indication: ANOREXIA
     Route: 042
     Dates: start: 20050512, end: 20050623
  34. PARENTERAL [Concomitant]
     Indication: ASTHENIA
  35. SODIUM BICARBONATE [Concomitant]
     Indication: DEHYDRATION
     Route: 042
     Dates: start: 20050427, end: 20050623
  36. GLUCOSE [Concomitant]
     Indication: DRUG USE FOR UNKNOWN INDICATION
     Route: 042
     Dates: start: 20050427, end: 20050623
  37. POTASSIUM CHLORIDE [Concomitant]
     Indication: DEHYDRATION
     Route: 048
     Dates: start: 20050427, end: 20050623
  38. FENTANYL [Concomitant]
     Indication: DIARRHOEA
     Route: 062
     Dates: start: 20050601, end: 20050623
  39. ENOXAPARIN SODIUM [Concomitant]
     Indication: PROPHYLAXIS
     Route: 058
  40. ENOXAPARIN SODIUM [Concomitant]
     Route: 058
     Dates: start: 20050521
  41. ENOXAPARIN SODIUM [Concomitant]
     Route: 058
     Dates: start: 20050620, end: 20050623
  42. CEFOTAXIME SODIUM [Concomitant]
     Indication: LUNG DISORDER
     Route: 042
     Dates: start: 20050526, end: 20050623
  43. FUZEON [Concomitant]
     Indication: HIV INFECTION
     Route: 058
     Dates: start: 20050322
  44. POTASSIUM CHLORIDE [Concomitant]
     Indication: HYPOKALAEMIA
     Route: 048
  45. CLARITHROMYCIN [Concomitant]
     Indication: GASTROENTERITIS CRYPTOSPORIDIAL
     Route: 048
  46. TENOFOVIR [Concomitant]
     Indication: HIV INFECTION
     Dates: end: 20050427
  47. TENOFOVIR [Concomitant]
     Dates: start: 20050512
  48. LAMIVUDINE [Concomitant]
     Dates: end: 20050427
  49. LAMIVUDINE [Concomitant]
     Dates: start: 20050512

REACTIONS (10)
  - CONFUSIONAL STATE [None]
  - DEHYDRATION [None]
  - DIARRHOEA [None]
  - GASTROENTERITIS CRYPTOSPORIDIAL [None]
  - HYPOTENSION [None]
  - HYPOTHERMIA [None]
  - METABOLIC ACIDOSIS [None]
  - RENAL FAILURE [None]
  - SEPSIS [None]
  - VOMITING [None]
